FAERS Safety Report 19987634 (Version 1)
Quarter: 2021Q4

REPORT INFORMATION
  Report Type: Spontaneous
  Country: JP (occurrence: JP)
  Receive Date: 20211022
  Receipt Date: 20211022
  Transmission Date: 20220303
  Serious: Yes (Hospitalization, Other)
  Sender: FDA-Public Use
  Company Number: JP-VIIV HEALTHCARE LIMITED-JP2021JPN215786AA

PATIENT
  Sex: Male

DRUGS (2)
  1. HEPSERA [Suspect]
     Active Substance: ADEFOVIR DIPIVOXIL
     Dosage: UNK
  2. ZEFIX [Suspect]
     Active Substance: LAMIVUDINE
     Dosage: UNK

REACTIONS (10)
  - Malaise [Unknown]
  - Hypokalaemia [Unknown]
  - Fanconi syndrome [Unknown]
  - Nephritis [Unknown]
  - Renal tubular atrophy [Unknown]
  - Drug resistance [Unknown]
  - Metabolic acidosis [Unknown]
  - Hypophosphataemia [Unknown]
  - Hypouricaemia [Unknown]
  - Aminoaciduria [Unknown]
